FAERS Safety Report 13475134 (Version 2)
Quarter: 2017Q3

REPORT INFORMATION
  Report Type: Report from Study
  Country: US (occurrence: US)
  Receive Date: 20170424
  Receipt Date: 20170728
  Transmission Date: 20171127
  Serious: No
  Sender: FDA-Public Use
  Company Number: US-AMGEN-USASL2017057473

PATIENT
  Age: 46 Year
  Sex: Male

DRUGS (1)
  1. REPATHA [Suspect]
     Active Substance: EVOLOCUMAB
     Indication: HYPERCHOLESTEROLAEMIA
     Dosage: 140 MG, Q2WK
     Route: 065
     Dates: start: 20170301

REACTIONS (16)
  - Pain in extremity [Unknown]
  - Respiratory tract congestion [Unknown]
  - Flatulence [Unknown]
  - Dizziness [Unknown]
  - Gingival disorder [Unknown]
  - Oropharyngeal pain [Unknown]
  - Muscle spasms [Unknown]
  - Abdominal pain [Unknown]
  - Headache [Unknown]
  - Sensitivity of teeth [Unknown]
  - Productive cough [Unknown]
  - Abnormal faeces [Unknown]
  - Testicular pain [Not Recovered/Not Resolved]
  - Myalgia [Unknown]
  - Rash [Unknown]
  - Eye pain [Unknown]

NARRATIVE: CASE EVENT DATE: 201703
